FAERS Safety Report 12724241 (Version 1)
Quarter: 2016Q3

REPORT INFORMATION
  Report Type: Spontaneous
  Country: US (occurrence: US)
  Receive Date: 20160908
  Receipt Date: 20160908
  Transmission Date: 20161109
  Serious: No
  Sender: FDA-Public Use
  Company Number: US-APOTEX-2015AP014106

PATIENT
  Age: 26 Year
  Sex: Female

DRUGS (1)
  1. VALPROIC ACID ORAL SOLUTION USP [Suspect]
     Active Substance: VALPROIC ACID
     Indication: EPILEPSY
     Dosage: 500 MG, BID
     Route: 065

REACTIONS (2)
  - Onycholysis [Recovering/Resolving]
  - Nail pterygium [Recovering/Resolving]
